FAERS Safety Report 14915210 (Version 1)
Quarter: 2018Q2

REPORT INFORMATION
  Report Type: Spontaneous
  Country: US (occurrence: US)
  Receive Date: 20180501
  Receipt Date: 20180501
  Transmission Date: 20180711
  Serious: Yes (Death)
  Sender: FDA-Public Use
  Company Number: None

PATIENT
  Age: 27 Year
  Sex: Female
  Weight: 99 kg

DRUGS (19)
  1. TECFIDERA [Suspect]
     Active Substance: DIMETHYL FUMARATE
     Indication: MULTIPLE SCLEROSIS
     Route: 048
     Dates: start: 20130601, end: 20150201
  2. SYNTHROID [Concomitant]
     Active Substance: LEVOTHYROXINE SODIUM
  3. OMEGA-3 FATTY ACID [Concomitant]
     Active Substance: OMEGA-3 FATTY ACIDS
  4. BACLOFEN 10MG [Concomitant]
     Active Substance: BACLOFEN
  5. DOXAZOSIN [Concomitant]
     Active Substance: DOXAZOSIN\DOXAZOSIN MESYLATE
  6. B12 1000MCG/ML [Concomitant]
  7. TEMAZEPAM 30MG [Concomitant]
     Active Substance: TEMAZEPAM
  8. OS-CAL 600MG [Concomitant]
  9. NORCO 10-325 [Concomitant]
  10. METHADONE [Concomitant]
     Active Substance: METHADONE HYDROCHLORIDE
  11. PHENERGAN 25MG [Concomitant]
  12. VITAMIN D3 5000 UNITS [Concomitant]
  13. GABAPENTIN 100MG [Concomitant]
     Active Substance: GABAPENTIN
  14. MULTIVITAMIN [Concomitant]
     Active Substance: VITAMINS
  15. TIZANIDINE 4MG [Concomitant]
     Active Substance: TIZANIDINE
  16. MICROGESTIN [Concomitant]
     Active Substance: ETHINYL ESTRADIOL\NORETHINDRONE ACETATE
  17. TEMAZEPAM 15MG [Concomitant]
  18. SAVELLA [Concomitant]
     Active Substance: MILNACIPRAN HYDROCHLORIDE
  19. TIZANIDINE 6MG [Concomitant]

REACTIONS (8)
  - Bronchitis [None]
  - Unresponsive to stimuli [None]
  - Device related infection [None]
  - Cough [None]
  - Pain in extremity [None]
  - Fall [None]
  - Cardiac arrest [None]
  - Pneumonia [None]

NARRATIVE: CASE EVENT DATE: 20150201
